FAERS Safety Report 5168308-2 (Version None)
Quarter: 2006Q4

REPORT INFORMATION
  Report Type: 
  Country: None (occurrence: None)
  Receive Date: 20061208
  Receipt Date: 20060529
  Transmission Date: 20070319
  Serious: Yes (Other)
  Sender: FDA-Public Use
  Company Number: CA-ROCHE-449925

PATIENT
  Sex: Female

DRUGS (2)
  1. TAMIFLU [Suspect]
     Indication: DRUG USE FOR UNKNOWN INDICATION
     Dosage: STARTED IN 2006.
     Route: 048
  2. FLU VACCINE [Suspect]
     Indication: DRUG USE FOR UNKNOWN INDICATION
     Dosage: START AND STOP DATE IN 2006.
     Route: 030

REACTIONS (2)
  - ACCOMMODATION DISORDER [None]
  - PARALYSIS [None]
